FAERS Safety Report 12572320 (Version 1)
Quarter: 2016Q3

REPORT INFORMATION
  Report Type: Report from Study
  Country: GT (occurrence: GT)
  Receive Date: 20160719
  Receipt Date: 20160719
  Transmission Date: 20161109
  Serious: Yes (Hospitalization)
  Sender: FDA-Public Use
  Company Number: GT-ABBVIE-16P-069-1678566-00

PATIENT
  Sex: Female

DRUGS (1)
  1. ZEMPLAR [Suspect]
     Active Substance: PARICALCITOL
     Indication: PRODUCT USED FOR UNKNOWN INDICATION
     Dosage: ZEMPLAR IS ADMINISTERED DURING HEMODIALYSIS
     Route: 042
     Dates: start: 20160301

REACTIONS (2)
  - Thrombosis [Unknown]
  - Complication associated with device [Unknown]
